FAERS Safety Report 8780006 (Version 1)
Quarter: 2012Q4

REPORT INFORMATION
  Report Type: Report from Study
  Country: US (occurrence: US)
  Receive Date: 20120912
  Receipt Date: 20120912
  Transmission Date: 20130627
  Serious: Yes (Other)
  Sender: FDA-Public Use
  Company Number: US-VERTEX PHARMACEUTICAL INC.-AE-2012-000539

PATIENT
  Sex: Male
  Weight: 76.2 kg

DRUGS (4)
  1. INCIVEK [Suspect]
     Indication: HEPATITIS C
     Route: 048
     Dates: start: 20111116, end: 20120208
  2. RIBAVIRIN [Concomitant]
     Indication: HEPATITIS C
     Route: 048
     Dates: start: 20111116
  3. RIBAVIRIN [Concomitant]
     Dates: end: 20120516
  4. PEGASYS [Concomitant]
     Indication: HEPATITIS C
     Route: 058
     Dates: start: 20111116, end: 20120516

REACTIONS (7)
  - Anaemia [Not Recovered/Not Resolved]
  - Abdominal pain [Recovered/Resolved]
  - Dry mouth [Unknown]
  - Dizziness [Not Recovered/Not Resolved]
  - Rash generalised [Not Recovered/Not Resolved]
  - Nausea [Unknown]
  - Vomiting [Unknown]
